FAERS Safety Report 20523816 (Version 1)
Quarter: 2022Q1

REPORT INFORMATION
  Report Type: Spontaneous
  Country: US (occurrence: US)
  Receive Date: 20220228
  Receipt Date: 20220228
  Transmission Date: 20220423
  Serious: No
  Sender: FDA-Public Use
  Company Number: US-IGSA-BIG0013767

PATIENT
  Age: 65 Year
  Sex: Female

DRUGS (2)
  1. PROLASTIN [Suspect]
     Active Substance: .ALPHA.1-PROTEINASE INHIBITOR HUMAN
     Indication: Alpha-1 antitrypsin deficiency
     Dosage: UNK UNK, UNKNOWN
     Route: 042
  2. OZEMPIC [Concomitant]
     Active Substance: SEMAGLUTIDE

REACTIONS (3)
  - Tremor [Unknown]
  - Chills [Unknown]
  - Heart rate increased [Unknown]
